FAERS Safety Report 10236570 (Version 1)
Quarter: 2014Q2

REPORT INFORMATION
  Report Type: Spontaneous
  Country: DE (occurrence: DE)
  Receive Date: 20140613
  Receipt Date: 20140613
  Transmission Date: 20141212
  Serious: Yes (Death)
  Sender: FDA-Public Use
  Company Number: PHHY2014DE070222

PATIENT
  Age: 54 Year
  Sex: Male

DRUGS (5)
  1. VALPROIC ACID [Suspect]
     Indication: EPILEPSY
  2. ISOSORBIDE DINITRATE [Suspect]
  3. HYDROCHLOROTHIAZIDE [Suspect]
  4. THYROXINE [Suspect]
  5. TRIAMTERENE [Suspect]

REACTIONS (1)
  - Hepatic failure [Fatal]
